FAERS Safety Report 19558258 (Version 1)
Quarter: 2021Q3

REPORT INFORMATION
  Report Type: Spontaneous
  Country: US (occurrence: US)
  Receive Date: 20210716
  Receipt Date: 20210716
  Transmission Date: 20211014
  Serious: No
  Sender: FDA-Public Use
  Company Number: US-JNJFOC-20210711182

PATIENT
  Age: 60 Year
  Sex: Male
  Weight: 85.73 kg

DRUGS (18)
  1. BENADRYL [Suspect]
     Active Substance: DIPHENHYDRAMINE HYDROCHLORIDE
     Indication: LETHARGY
     Route: 065
     Dates: start: 2021
  2. BENADRYL [Suspect]
     Active Substance: DIPHENHYDRAMINE HYDROCHLORIDE
     Indication: HEADACHE
  3. ASPRIN [Concomitant]
     Active Substance: ASPIRIN
     Indication: VISUAL IMPAIRMENT
  4. TYLENOL [Suspect]
     Active Substance: ACETAMINOPHEN
     Indication: VACCINATION COMPLICATION
  5. BENADRYL [Suspect]
     Active Substance: DIPHENHYDRAMINE HYDROCHLORIDE
     Indication: HYPERHIDROSIS
  6. COVID?19 VACCINE [Concomitant]
     Route: 065
     Dates: start: 20210422
  7. BENADRYL [Suspect]
     Active Substance: DIPHENHYDRAMINE HYDROCHLORIDE
     Indication: VISUAL IMPAIRMENT
  8. TYLENOL [Suspect]
     Active Substance: ACETAMINOPHEN
     Indication: HEADACHE
  9. ASPRIN [Concomitant]
     Active Substance: ASPIRIN
     Indication: HYPERHIDROSIS
  10. ASPRIN [Concomitant]
     Active Substance: ASPIRIN
     Indication: VACCINATION COMPLICATION
  11. TYLENOL [Suspect]
     Active Substance: ACETAMINOPHEN
     Indication: HYPERHIDROSIS
  12. TYLENOL [Suspect]
     Active Substance: ACETAMINOPHEN
     Indication: LETHARGY
     Route: 065
     Dates: start: 2021
  13. TYLENOL [Suspect]
     Active Substance: ACETAMINOPHEN
     Indication: VISUAL IMPAIRMENT
  14. BENADRYL [Suspect]
     Active Substance: DIPHENHYDRAMINE HYDROCHLORIDE
     Indication: VACCINATION COMPLICATION
  15. ASPRIN [Concomitant]
     Active Substance: ASPIRIN
     Indication: LETHARGY
     Route: 065
  16. PROPRANOLOL HYDROCHLORIDE. [Concomitant]
     Active Substance: PROPRANOLOL HYDROCHLORIDE
     Indication: PRODUCT USED FOR UNKNOWN INDICATION
     Route: 065
  17. COVID?19 VACCINE [Concomitant]
     Indication: PRODUCT USED FOR UNKNOWN INDICATION
     Route: 065
     Dates: start: 20210401
  18. ASPRIN [Concomitant]
     Active Substance: ASPIRIN
     Indication: HEADACHE

REACTIONS (1)
  - Product use in unapproved indication [Unknown]

NARRATIVE: CASE EVENT DATE: 2021
